FAERS Safety Report 7039003-X (Version None)
Quarter: 2010Q4

REPORT INFORMATION
  Report Type: 
  Country: None (occurrence: None)
  Receive Date: 20101012
  Receipt Date: 20100929
  Transmission Date: 20110411
  Serious: Yes (Hospitalization, Other)
  Sender: FDA-Public Use
  Company Number: US-ELI_LILLY_AND_COMPANY-US201005006639

PATIENT
  Sex: Female

DRUGS (5)
  1. FORTEO [Suspect]
     Indication: OSTEOPOROSIS
     Dosage: 20 UG, DAILY (1/D)
  2. FORTEO [Suspect]
     Dosage: 20 UG, DAILY (1/D)
  3. PLAVIX [Concomitant]
  4. DIOVAN [Concomitant]
  5. NORVASC [Concomitant]

REACTIONS (6)
  - BACK PAIN [None]
  - HEART RATE INCREASED [None]
  - INJECTION SITE HAEMATOMA [None]
  - INTERVERTEBRAL DISC DISORDER [None]
  - MACULAR DEGENERATION [None]
  - NEURALGIA [None]
